FAERS Safety Report 20154150 (Version 1)
Quarter: 2021Q4

REPORT INFORMATION
  Report Type: Spontaneous
  Country: FR (occurrence: FR)
  Receive Date: 20211207
  Receipt Date: 20211207
  Transmission Date: 20220303
  Serious: Yes (Hospitalization, Other)
  Sender: FDA-Public Use
  Company Number: None

PATIENT
  Age: 29 Year
  Sex: Male
  Weight: 69 kg

DRUGS (4)
  1. LOVENOX [Suspect]
     Active Substance: ENOXAPARIN SODIUM
     Indication: Venous thrombosis
     Dosage: 7000 IU, BID
     Route: 058
     Dates: start: 20211004, end: 20211020
  2. ASPARAGINASE [Suspect]
     Active Substance: ASPARAGINASE
     Indication: T-cell type acute leukaemia
     Dosage: 11200 IU
     Route: 040
     Dates: start: 20211007, end: 20211007
  3. AMBISOME [Suspect]
     Active Substance: AMPHOTERICIN B
     Indication: Antifungal prophylaxis
     Dosage: 3 MG/KG
     Route: 041
     Dates: start: 20210927, end: 20211014
  4. FETROJA [Suspect]
     Active Substance: CEFIDEROCOL SULFATE TOSYLATE
     Indication: Sepsis
     Dosage: 2 G, Q6H
     Route: 040
     Dates: start: 20211001, end: 20211009

REACTIONS (1)
  - Hepatic cytolysis [Recovered/Resolved]
